FAERS Safety Report 4621807-1 (Version None)
Quarter: 2005Q1

REPORT INFORMATION
  Report Type: 
  Country: None (occurrence: None)
  Receive Date: 20050329
  Receipt Date: 20050315
  Transmission Date: 20050727
  Serious: Yes (Other)
  Sender: FDA-Public Use
  Company Number: US-ROCHE-398989

PATIENT
  Sex: Female

DRUGS (2)
  1. PEGASYS [Suspect]
     Route: 058
     Dates: start: 20050311
  2. COPEGUS [Suspect]
     Dosage: 2 IN THE MORNING AND 3 IN THE AFTERNOON.
     Route: 048
     Dates: start: 20050311

REACTIONS (4)
  - CONVULSION [None]
  - INSOMNIA [None]
  - MENTAL IMPAIRMENT [None]
  - PYREXIA [None]
